FAERS Safety Report 5548934-9 (Version None)
Quarter: 2007Q4

REPORT INFORMATION
  Report Type: 
  Country: None (occurrence: None)
  Receive Date: 20071211
  Receipt Date: 20070320
  Transmission Date: 20080405
  Serious: No
  Sender: FDA-Public Use
  Company Number: US-AMGEN-KDL216024

PATIENT
  Sex: Female

DRUGS (2)
  1. ENBREL [Suspect]
     Route: 058
     Dates: start: 20010701
  2. ARAVA [Concomitant]
     Route: 048
     Dates: start: 20040101

REACTIONS (2)
  - RASH PAPULAR [None]
  - RASH PRURITIC [None]
